FAERS Safety Report 9846361 (Version 1)
Quarter: 2013Q4

REPORT INFORMATION
  Report Type: Spontaneous
  Country: US (occurrence: None)
  Receive Date: 20131223
  Receipt Date: 20131223
  Transmission Date: 20140711
  Serious: No
  Sender: FDA-Public Use
  Company Number: CABO-13003316

PATIENT
  Age: 44 Year
  Sex: Female

DRUGS (9)
  1. COMETRIQ (CABOZANTINIB) CAPSULE [Suspect]
     Indication: THYROID CANCER
     Route: 048
     Dates: start: 20130808
  2. COMETRIQ (CABOZANTINIB) CAPSULE [Suspect]
     Indication: METASTASES TO BONE MARROW
     Route: 048
     Dates: start: 20130808
  3. LEVOTHYROXINE (LEVOTHYTROXINE) [Concomitant]
  4. OMEPRAZOLE (OMEPRAZOLE) [Concomitant]
  5. AMLODIPINE (AMLODIPINE) [Concomitant]
  6. LOSARTAN (LOSARTAN POTASSIUM) [Concomitant]
  7. IBUPROFEN (IBUPROFEN) [Concomitant]
  8. ZOFRAN (ONDANSETRON) [Concomitant]
  9. FENTANYL (FENTANYL) [Concomitant]

REACTIONS (9)
  - Depression [None]
  - Dizziness [None]
  - Nausea [None]
  - Stomatitis [None]
  - Palmar-plantar erythrodysaesthesia syndrome [None]
  - Hair colour changes [None]
  - Hypertension [None]
  - Fatigue [None]
  - Diarrhoea [None]
